FAERS Safety Report 15661690 (Version 2)
Quarter: 2018Q4

REPORT INFORMATION
  Report Type: Spontaneous
  Country: GB (occurrence: GB)
  Receive Date: 20181127
  Receipt Date: 20181204
  Transmission Date: 20190205
  Serious: Yes (Other)
  Sender: FDA-Public Use
  Company Number: GB-PFIZER INC-2018484641

PATIENT
  Age: 43 Year
  Sex: Male

DRUGS (3)
  1. ATROPINE SULFATE. [Suspect]
     Active Substance: ATROPINE SULFATE
     Dosage: UNK, EVERY 4 HRS
     Route: 047
     Dates: start: 18900917
  2. ATROPINE SULFATE. [Suspect]
     Active Substance: ATROPINE SULFATE
     Dosage: 4 GTT, EVERY OTHER HOUR (GUTTAE ATROPINE FORT; ALT. HOR SEQ)
     Route: 047
     Dates: start: 18900916, end: 18900916
  3. ATROPINE SULFATE. [Suspect]
     Active Substance: ATROPINE SULFATE
     Indication: IRITIS
     Dosage: 2/5 GR. IN TWO DAYS
     Route: 047

REACTIONS (1)
  - Toxicity to various agents [Recovered/Resolved]
